FAERS Safety Report 8966943 (Version 2)
Quarter: 2013Q1

REPORT INFORMATION
  Report Type: Spontaneous
  Country: BE (occurrence: BE)
  Receive Date: 20121217
  Receipt Date: 20130215
  Transmission Date: 20140127
  Serious: Yes (Other)
  Sender: FDA-Public Use
  Company Number: BE-ASTRAZENECA-2012SE92214

PATIENT
  Age: 25045 Day
  Sex: Female
  Weight: 63 kg

DRUGS (10)
  1. BRILIQUE [Suspect]
     Indication: CORONARY ARTERIAL STENT INSERTION
     Route: 048
  2. BRILIQUE [Suspect]
     Indication: CORONARY ARTERIAL STENT INSERTION
     Route: 048
  3. CARDIOASPIRIN [Concomitant]
  4. BURINEX [Concomitant]
  5. COVERSYL [Concomitant]
  6. EMCONCOR [Concomitant]
  7. GLUCOPHAGE [Concomitant]
  8. COMBIVENT [Concomitant]
  9. SPIRIVA [Concomitant]
  10. SERETIDE [Concomitant]

REACTIONS (1)
  - Hepatitis toxic [Recovered/Resolved]
